FAERS Safety Report 6102546-7 (Version None)
Quarter: 2009Q1

REPORT INFORMATION
  Report Type: 
  Country: None (occurrence: None)
  Receive Date: 20090304
  Receipt Date: 20080807
  Transmission Date: 20090719
  Serious: No
  Sender: FDA-Public Use
  Company Number: A0742535A

PATIENT
  Age: 82 Year
  Sex: Female

DRUGS (6)
  1. REQUIP [Suspect]
     Indication: RESTLESS LEGS SYNDROME
     Route: 048
     Dates: start: 20080801
  2. EXFORGE [Concomitant]
  3. PRISTIQ [Concomitant]
  4. MINERAL TAB [Concomitant]
  5. VITAMINS [Concomitant]
  6. ASPIRIN [Concomitant]

REACTIONS (3)
  - MUSCULOSKELETAL STIFFNESS [None]
  - POOR QUALITY SLEEP [None]
  - RESTLESS LEGS SYNDROME [None]
